FAERS Safety Report 5515847-8 (Version None)
Quarter: 2007Q4

REPORT INFORMATION
  Report Type: 
  Country: None (occurrence: None)
  Receive Date: 20071109
  Receipt Date: 20071026
  Transmission Date: 20080405
  Serious: Yes (Other)
  Sender: FDA-Public Use
  Company Number: GXKR2007PL09276

PATIENT
  Age: 47 Year
  Sex: Female

DRUGS (2)
  1. LENDACIN                            (CEFTRIAXONE) UNKNOWN [Suspect]
     Indication: POLYNEUROPATHY
     Dosage: INFUSION
     Dates: start: 20070727, end: 20070811
  2. BIOTRAKSON                                    (CEFTRIAXONE SODIUM) [Suspect]
     Indication: POLYNEUROPATHY
     Dosage: INFUSION
     Dates: start: 20070727, end: 20070811

REACTIONS (7)
  - ASTHENIA [None]
  - BACK PAIN [None]
  - C-REACTIVE PROTEIN INCREASED [None]
  - HEADACHE [None]
  - MYALGIA [None]
  - PRURITUS [None]
  - PYREXIA [None]
